FAERS Safety Report 5767893-7 (Version None)
Quarter: 2008Q2

REPORT INFORMATION
  Report Type: 
  Country: None (occurrence: None)
  Receive Date: 20080606
  Receipt Date: 20080530
  Transmission Date: 20081010
  Serious: Yes (Hospitalization, Other)
  Sender: FDA-Public Use
  Company Number: 2008JP000245

PATIENT
  Age: 45 Year
  Sex: Female
  Weight: 39.5 kg

DRUGS (14)
  1. TACROLIMUS [Suspect]
     Indication: LUPUS NEPHRITIS
     Dosage: 3 MG,  /D, ORAL
     Route: 048
     Dates: start: 20070809, end: 20070818
  2. PREDNISOLONE [Suspect]
     Indication: LUPUS NEPHRITIS
     Dosage: 16 MG,  /D, ORAL; 20 MG, /D, ORAL;15 MG,/D, ORAL;12.5 MG, /D, ORAL; 10 MG; /D, ORAL
     Route: 048
     Dates: start: 20040907, end: 20070918
  3. PREDNISOLONE [Suspect]
     Indication: LUPUS NEPHRITIS
     Dosage: 16 MG,  /D, ORAL; 20 MG, /D, ORAL;15 MG,/D, ORAL;12.5 MG, /D, ORAL; 10 MG; /D, ORAL
     Route: 048
     Dates: start: 20071030, end: 20071112
  4. PREDNISOLONE [Suspect]
     Indication: LUPUS NEPHRITIS
     Dosage: 16 MG,  /D, ORAL; 20 MG, /D, ORAL;15 MG,/D, ORAL;12.5 MG, /D, ORAL; 10 MG; /D, ORAL
     Route: 048
     Dates: start: 20071113, end: 20071203
  5. PREDNISOLONE [Suspect]
     Indication: LUPUS NEPHRITIS
     Dosage: 16 MG,  /D, ORAL; 20 MG, /D, ORAL;15 MG,/D, ORAL;12.5 MG, /D, ORAL; 10 MG; /D, ORAL
     Route: 048
     Dates: start: 20071204, end: 20071217
  6. PREDNISOLONE [Suspect]
     Indication: LUPUS NEPHRITIS
     Dosage: 16 MG,  /D, ORAL; 20 MG, /D, ORAL;15 MG,/D, ORAL;12.5 MG, /D, ORAL; 10 MG; /D, ORAL
     Route: 048
     Dates: start: 20071218
  7. PREDNISOLONE [Suspect]
     Indication: LUPUS NEPHRITIS
     Dosage: 20 MG, /D
     Dates: start: 20070919, end: 20071029
  8. FLURBIPROFEN [Suspect]
     Dosage: 5 ML
     Dates: start: 20070928, end: 20071008
  9. LIPITOR [Concomitant]
  10. ROXATIDINE ACETATE HCL [Concomitant]
  11. BONALOLN (ALENDRONIC ACID) [Concomitant]
  12. SULPERAZON (SULBACTAM) INJECTION [Concomitant]
  13. ALBUMIN (ALBUMIN HUMAN) INJECTION [Concomitant]
  14. ELCITONIN (ELCATONIN) INJECTION [Concomitant]

REACTIONS (11)
  - ANAL HAEMORRHAGE [None]
  - BLOOD GLUCOSE INCREASED [None]
  - BLOOD LACTATE DEHYDROGENASE INCREASED [None]
  - DISEASE RECURRENCE [None]
  - GAMMA-GLUTAMYLTRANSFERASE INCREASED [None]
  - HYPOALBUMINAEMIA [None]
  - OSTEOPOROSIS [None]
  - PLATELET COUNT DECREASED [None]
  - PNEUMONIA [None]
  - RENAL IMPAIRMENT [None]
  - SPINAL COMPRESSION FRACTURE [None]
